FAERS Safety Report 13291478 (Version 7)
Quarter: 2017Q2

REPORT INFORMATION
  Report Type: Report from Study
  Country: NL (occurrence: NL)
  Receive Date: 20170303
  Receipt Date: 20170525
  Transmission Date: 20170830
  Serious: Yes (Life-Threatening, Other)
  Sender: FDA-Public Use
  Company Number: NL-ROCHE-1863598

PATIENT
  Age: 75 Year
  Sex: Female
  Weight: 70.7 kg

DRUGS (32)
  1. TAVEGIL [Concomitant]
     Active Substance: CLEMASTINE FUMARATE
     Dosage: 1 MG 2 X DD
     Route: 065
     Dates: start: 20140708
  2. SPIRONOLACTON [Concomitant]
     Active Substance: SPIRONOLACTONE
     Route: 065
     Dates: start: 20140103, end: 20140117
  3. SPIRONOLACTON [Concomitant]
     Active Substance: SPIRONOLACTONE
     Route: 065
     Dates: start: 20140207, end: 20140613
  4. PERTUZUMAB [Suspect]
     Active Substance: PERTUZUMAB
     Indication: HER-2 POSITIVE BREAST CANCER
     Dosage: LOADING DOSE
     Route: 042
     Dates: start: 20130902, end: 20130902
  5. TRASTUZUMAB [Suspect]
     Active Substance: TRASTUZUMAB
     Indication: HER-2 POSITIVE BREAST CANCER
     Dosage: LOADING DOSE
     Route: 042
     Dates: start: 20130903, end: 20130903
  6. CETIRIZINE [Concomitant]
     Active Substance: CETIRIZINE HYDROCHLORIDE
     Route: 065
     Dates: start: 20141222, end: 20150223
  7. PAROXETINE. [Concomitant]
     Active Substance: PAROXETINE
     Route: 065
     Dates: start: 20150720
  8. FURADANTINE [Concomitant]
     Active Substance: NITROFURANTOIN
     Route: 065
     Dates: start: 20160617, end: 20160624
  9. DOCETAXEL. [Suspect]
     Active Substance: DOCETAXEL
     Indication: HER-2 POSITIVE BREAST CANCER
     Dosage: LAST DOSE PRIOR TO SAE 06/MAY/2014
     Route: 042
     Dates: start: 20130903
  10. BISOPROLOL FUMARATE. [Concomitant]
     Active Substance: BISOPROLOL FUMARATE
     Indication: ANGINA PECTORIS
     Route: 065
     Dates: start: 2000
  11. ASCAL CARDIO [Concomitant]
     Active Substance: CARBASPIRIN
     Indication: ANGINA PECTORIS
     Route: 065
     Dates: start: 1996, end: 20161011
  12. PREDNISON [Concomitant]
     Active Substance: PREDNISONE
     Route: 065
     Dates: start: 20150423, end: 20150515
  13. TRASTUZUMAB [Suspect]
     Active Substance: TRASTUZUMAB
     Dosage: MAINTANENCE DOSE (420 MG)?LAST DOSE PRIOR TO SAE ON 20/SEP/2016
     Route: 042
     Dates: start: 20130924, end: 20161027
  14. SIMVASTATINE [Concomitant]
     Active Substance: SIMVASTATIN
     Route: 065
     Dates: start: 2000, end: 20140925
  15. SPIRONOLACTON [Concomitant]
     Active Substance: SPIRONOLACTONE
     Route: 065
     Dates: start: 20140117, end: 20140207
  16. PARACETAMOL [Concomitant]
     Active Substance: ACETAMINOPHEN
     Route: 065
     Dates: start: 20130907, end: 20130909
  17. BURINEX [Concomitant]
     Active Substance: BUMETANIDE
     Route: 065
     Dates: start: 20140103, end: 20140113
  18. PANTOZOL (NETHERLANDS) [Concomitant]
     Indication: PROPHYLAXIS
     Route: 065
     Dates: start: 20140120
  19. VITAMIN B12 [Concomitant]
     Active Substance: CYANOCOBALAMIN
     Indication: VITAMIN B12 DEFICIENCY
     Route: 048
     Dates: start: 20140725
  20. CALCICHEW D3 [Concomitant]
     Active Substance: CALCIUM\CHOLECALCIFEROL
     Indication: CALCIUM DEFICIENCY
     Dosage: 500/400 IE
     Route: 065
     Dates: start: 20140813
  21. VOLTAREN [Concomitant]
     Active Substance: DICLOFENAC SODIUM
     Dosage: MAX 150 MG
     Route: 065
     Dates: start: 20141201, end: 20141222
  22. LORATADIN [Concomitant]
     Active Substance: LORATADINE
     Route: 065
     Dates: start: 20150223, end: 20150316
  23. DEXAMETHASON [Concomitant]
     Active Substance: DEXAMETHASONE
     Indication: PROPHYLAXIS
     Route: 065
     Dates: start: 20130902, end: 20140502
  24. XGEVA [Concomitant]
     Active Substance: DENOSUMAB
     Indication: HYPOCALCAEMIA
     Route: 065
     Dates: start: 20140813, end: 20141017
  25. ISOSORBIDE DINITRATE. [Concomitant]
     Active Substance: ISOSORBIDE DINITRATE
     Route: 065
     Dates: start: 2000
  26. PARACETAMOL [Concomitant]
     Active Substance: ACETAMINOPHEN
     Dosage: MAX 3000 MG
     Route: 065
     Dates: start: 20160222
  27. NORMISON (NETHERLANDS) [Concomitant]
     Route: 065
     Dates: start: 20131122
  28. PERTUZUMAB [Suspect]
     Active Substance: PERTUZUMAB
     Dosage: MAINTENANCE DOSE.?LAST DOSE PRIOR TO AESI 11/OCT/2016
     Route: 042
     Dates: start: 20130923, end: 20161027
  29. IMODIUM [Concomitant]
     Active Substance: LOPERAMIDE HYDROCHLORIDE
     Route: 065
     Dates: start: 20130909, end: 20130911
  30. ZOMETA [Concomitant]
     Active Substance: ZOLEDRONIC ACID
     Indication: HYPERCALCAEMIA OF MALIGNANCY
     Dosage: 4 MG/6 WEEKS
     Route: 065
     Dates: start: 20141017
  31. NAPROXEN. [Concomitant]
     Active Substance: NAPROXEN
     Dosage: MAX 1500 MG
     Route: 065
     Dates: start: 20141222
  32. PARACETAMOL [Concomitant]
     Active Substance: ACETAMINOPHEN
     Dosage: MAX 3000 MG
     Route: 065
     Dates: start: 20160222

REACTIONS (2)
  - Atrial fibrillation [Recovered/Resolved]
  - Ejection fraction decreased [Recovered/Resolved]

NARRATIVE: CASE EVENT DATE: 20161011
